FAERS Safety Report 22382900 (Version 1)
Quarter: 2023Q2

REPORT INFORMATION
  Report Type: Spontaneous
  Country: IN (occurrence: IN)
  Receive Date: 20230530
  Receipt Date: 20230530
  Transmission Date: 20230721
  Serious: Yes (Other)
  Sender: FDA-Public Use
  Company Number: IN-drreddys-LIT/IND/23/0165951

PATIENT
  Age: 53 Year
  Sex: Male

DRUGS (5)
  1. PEMETREXED [Suspect]
     Active Substance: PEMETREXED
     Indication: Non-small cell lung cancer stage II
     Dosage: 4 CYCLES
  2. PEMETREXED [Suspect]
     Active Substance: PEMETREXED
     Dosage: MULTIPLE LINES OF CHEMOTHERAPY
  3. PEMETREXED [Suspect]
     Active Substance: PEMETREXED
     Dosage: MAINTENANCE
  4. CARBOPLATIN [Suspect]
     Active Substance: CARBOPLATIN
     Indication: Non-small cell lung cancer stage II
  5. CISPLATIN [Suspect]
     Active Substance: CISPLATIN
     Indication: Non-small cell lung cancer stage II
     Dosage: 4 CYCLES

REACTIONS (4)
  - Non-small cell lung cancer recurrent [Recovering/Resolving]
  - Renal impairment [Unknown]
  - Non-small cell lung cancer [Recovering/Resolving]
  - Drug ineffective [Unknown]
